FAERS Safety Report 13598004 (Version 1)
Quarter: 2017Q2

REPORT INFORMATION
  Report Type: Report from Study
  Country: CO (occurrence: CO)
  Receive Date: 20170531
  Receipt Date: 20170531
  Transmission Date: 20170830
  Serious: Yes (Death, Life-Threatening)
  Sender: FDA-Public Use
  Company Number: CO-AMGEN-COLSL2017081500

PATIENT
  Age: 68 Year
  Sex: Female

DRUGS (1)
  1. MIMPARA [Suspect]
     Active Substance: CINACALCET HYDROCHLORIDE
     Indication: HYPERPARATHYROIDISM SECONDARY
     Dosage: 60 MG, QD
     Route: 048
     Dates: start: 20151007, end: 20161129

REACTIONS (2)
  - Oedema [Fatal]
  - Venous occlusion [Fatal]
